FAERS Safety Report 10089257 (Version 1)
Quarter: 2014Q2

REPORT INFORMATION
  Report Type: Spontaneous
  Country: US (occurrence: None)
  Receive Date: 20140418
  Receipt Date: 20140418
  Transmission Date: 20141212
  Serious: Yes (Other)
  Sender: FDA-Public Use
  Company Number: None

PATIENT
  Age: 25 Year
  Sex: Female
  Weight: 47.63 kg

DRUGS (1)
  1. DEPO PROVERA UNSURE [Suspect]
     Route: 030
     Dates: start: 20140305

REACTIONS (2)
  - Quality of life decreased [None]
  - Mental disorder [None]
